FAERS Safety Report 14690593 (Version 1)
Quarter: 2018Q1

REPORT INFORMATION
  Report Type: Spontaneous
  Country: US (occurrence: US)
  Receive Date: 20180328
  Receipt Date: 20180328
  Transmission Date: 20180509
  Serious: No
  Sender: FDA-Public Use
  Company Number: US-TARO-2018TAR00059

PATIENT
  Age: 70 Year
  Sex: Male
  Weight: 95.24 kg

DRUGS (4)
  1. ATORVASTATIN [Concomitant]
     Active Substance: ATORVASTATIN
     Dosage: 40 MG, 1X/DAY
  2. MULTIPLE UNSPECIFIED MULTIVITAMINS [Concomitant]
  3. FLUOROURACIL TOPICAL CREAM USP 5% [Suspect]
     Active Substance: FLUOROURACIL
     Indication: SOLAR LENTIGO
     Dosage: UNK UNK, 2X/DAY
     Route: 061
     Dates: start: 20180113
  4. TRAZODONE [Concomitant]
     Active Substance: TRAZODONE HYDROCHLORIDE
     Dosage: 50 MG, 1X/DAY AT BEDTIME

REACTIONS (2)
  - Product quality issue [Not Recovered/Not Resolved]
  - Drug ineffective [Not Recovered/Not Resolved]

NARRATIVE: CASE EVENT DATE: 20180113
